FAERS Safety Report 4724369-3 (Version None)
Quarter: 2005Q3

REPORT INFORMATION
  Report Type: 
  Country: None (occurrence: None)
  Receive Date: 20050720
  Receipt Date: 20050720
  Transmission Date: 20060218
  Serious: Yes (Disabling)
  Sender: FDA-Public Use
  Company Number: None

PATIENT
  Age: 59 Year
  Sex: Male
  Weight: 68 kg

DRUGS (2)
  1. AVASTIN [Suspect]
     Indication: RENAL CELL CARCINOMA STAGE UNSPECIFIED
     Dosage: 680 MG IV X 1 DOSE
     Route: 042
     Dates: start: 20041229, end: 20041229
  2. ERLOTINIB [Concomitant]

REACTIONS (8)
  - APHASIA [None]
  - AREFLEXIA [None]
  - FACIAL PALSY [None]
  - HYPOTENSION [None]
  - ISCHAEMIC STROKE [None]
  - LETHARGY [None]
  - SOMNOLENCE [None]
  - THROMBOTIC STROKE [None]
